FAERS Safety Report 7387880-5 (Version None)
Quarter: 2011Q1

REPORT INFORMATION
  Report Type: 
  Country: None (occurrence: None)
  Receive Date: 20110331
  Receipt Date: 20110323
  Transmission Date: 20110831
  Serious: Yes (Death)
  Sender: FDA-Public Use
  Company Number: US-GILEAD-2010-0032634

PATIENT
  Sex: Female

DRUGS (6)
  1. HYDROCHLOROTHIAZIDE [Concomitant]
  2. DILTIAZEM [Concomitant]
  3. REVATIO [Concomitant]
  4. LETAIRIS [Suspect]
     Indication: PULMONARY ARTERIAL HYPERTENSION
     Route: 048
     Dates: start: 20090624
  5. FLUTICASONE PROPIONATE [Concomitant]
  6. CALCIUM CARBONATE [Concomitant]

REACTIONS (1)
  - DEATH [None]
